FAERS Safety Report 5275869-1 (Version None)
Quarter: 2007Q1

REPORT INFORMATION
  Report Type: 
  Country: None (occurrence: None)
  Receive Date: 20061213
  Receipt Date: 20041027
  Transmission Date: 20070707
  Serious: Yes (Hospitalization)
  Sender: FDA-Public Use
  Company Number: 2004UW22341

PATIENT
  Age: 52 Year
  Sex: Female

DRUGS (2)
  1. SEROQUEL [Suspect]
     Dosage: 100 MG HS PO
     Route: 048
  2. DILAUDID [Concomitant]

REACTIONS (2)
  - MENTAL STATUS CHANGES [None]
  - PYREXIA [None]
